FAERS Safety Report 25464092 (Version 2)
Quarter: 2025Q4

REPORT INFORMATION
  Report Type: Report from Study
  Country: CA (occurrence: CA)
  Receive Date: 20250621
  Receipt Date: 20251217
  Transmission Date: 20260117
  Serious: Yes (Hospitalization, Other)
  Sender: ASTELLAS
  Company Number: CA-PFIZER INC-202500118859

PATIENT
  Age: 69 Year
  Sex: Male
  Weight: 94 kg

DRUGS (4)
  1. ENFORTUMAB VEDOTIN-EJFV [Suspect]
     Active Substance: ENFORTUMAB VEDOTIN-EJFV
     Indication: Transitional cell carcinoma metastatic
     Dosage: FOR 1 DAY AT 90 MG
     Route: 042
  2. ENFORTUMAB VEDOTIN-EJFV [Suspect]
     Active Substance: ENFORTUMAB VEDOTIN-EJFV
     Dosage: FOR 1 MONTH AT 90 MG
     Route: 042
  3. ENFORTUMAB VEDOTIN-EJFV [Suspect]
     Active Substance: ENFORTUMAB VEDOTIN-EJFV
     Dosage: FOR 1 MONTH AT 90 MG
     Route: 042
  4. KEYTRUDA [Suspect]
     Active Substance: PEMBROLIZUMAB
     Indication: Transitional cell carcinoma metastatic
     Dosage: 200 MG, EVERY 3 WEEKS
     Route: 042

REACTIONS (19)
  - Ageusia [Recovered/Resolved]
  - Constipation [Recovered/Resolved]
  - Diarrhoea [Recovered/Resolved]
  - Dizziness [Recovered/Resolved]
  - Dry mouth [Recovered/Resolved]
  - Dysphonia [Recovered/Resolved]
  - Fatigue [Recovered/Resolved]
  - Nausea [Recovered/Resolved]
  - Neuropathy peripheral [Recovered/Resolved]
  - Palpitations [Recovered/Resolved]
  - Vascular access complication [Recovered/Resolved]
  - Vomiting [Recovered/Resolved]
  - Weight fluctuation [Recovered/Resolved]
  - Blood creatinine increased [Recovered/Resolved]
  - Urinary tract obstruction [Recovered/Resolved]
  - Weight decreased [Recovered/Resolved]
  - Transitional cell carcinoma metastatic [Recovered/Resolved]
  - Malignant neoplasm progression [Recovered/Resolved]
  - Inappropriate schedule of product administration [Recovered/Resolved]
